FAERS Safety Report 5744313-X (Version None)
Quarter: 2008Q2

REPORT INFORMATION
  Report Type: 
  Country: None (occurrence: None)
  Receive Date: 20080516
  Receipt Date: 20080516
  Transmission Date: 20081010
  Serious: Yes (Life-Threatening, Hospitalization)
  Sender: FDA-Public Use
  Company Number: None

PATIENT
  Sex: Female
  Weight: 58.9676 kg

DRUGS (1)
  1. SINGULAIR [Suspect]
     Indication: ASTHMA
     Dosage: 1 TABLET BEDTIME PO/APPROX 5 YEARS
     Route: 048

REACTIONS (6)
  - DEPRESSION [None]
  - GASTRIC DISORDER [None]
  - HEADACHE [None]
  - INTENTIONAL SELF-INJURY [None]
  - NEUROPATHY PERIPHERAL [None]
  - SUICIDAL IDEATION [None]
